FAERS Safety Report 14311591 (Version 1)
Quarter: 2017Q4

REPORT INFORMATION
  Report Type: Spontaneous
  Country: US (occurrence: US)
  Receive Date: 20171221
  Receipt Date: 20171221
  Transmission Date: 20180321
  Serious: No
  Sender: FDA-Public Use
  Company Number: US-ELI_LILLY_AND_COMPANY-US201712004883

PATIENT
  Age: 88 Year
  Sex: Male

DRUGS (3)
  1. NOVOLOG [Concomitant]
     Active Substance: INSULIN ASPART
     Indication: PRODUCT USED FOR UNKNOWN INDICATION
  2. BASAGLAR [Suspect]
     Active Substance: INSULIN GLARGINE
     Indication: TYPE 2 DIABETES MELLITUS
     Dosage: 14 U, DAILY
     Route: 058
     Dates: start: 201708
  3. BASAGLAR [Suspect]
     Active Substance: INSULIN GLARGINE
     Dosage: 14 U, DAILY
     Route: 058

REACTIONS (2)
  - Incorrect dose administered [Unknown]
  - Incorrect dose administered [Unknown]

NARRATIVE: CASE EVENT DATE: 20171211
